FAERS Safety Report 19292108 (Version 2)
Quarter: 2021Q2

REPORT INFORMATION
  Report Type: Spontaneous
  Country: PT (occurrence: PT)
  Receive Date: 20210524
  Receipt Date: 20210618
  Transmission Date: 20210717
  Serious: Yes (Other)
  Sender: FDA-Public Use
  Company Number: PT-CELLTRION INC.-2021PT006790

PATIENT

DRUGS (4)
  1. INFLIXIMAB (UNKNOWN) [Suspect]
     Active Substance: INFLIXIMAB
     Dosage: 5 MG/KG (EVERY 9 WEEKS)
  2. INFLIXIMAB (UNKNOWN) [Suspect]
     Active Substance: INFLIXIMAB
     Dosage: 5 MG/KG EVERY 9 WEEKS (DOSE REDUCED TO 5MG/KG EVERY 9 WEEKS)
     Route: 065
  3. INFLIXIMAB (UNKNOWN) [Suspect]
     Active Substance: INFLIXIMAB
     Dosage: UNKNOWN
     Route: 065
     Dates: start: 2004
  4. INFLIXIMAB (UNKNOWN) [Suspect]
     Active Substance: INFLIXIMAB
     Indication: ANKYLOSING SPONDYLITIS
     Dosage: UNK
     Dates: start: 2004

REACTIONS (3)
  - Product use issue [Unknown]
  - Off label use [Unknown]
  - Disseminated tuberculosis [Recovering/Resolving]

NARRATIVE: CASE EVENT DATE: 201811
